FAERS Safety Report 20087505 (Version 3)
Quarter: 2022Q3

REPORT INFORMATION
  Report Type: Spontaneous
  Country: US (occurrence: None)
  Receive Date: 20211118
  Receipt Date: 20220707
  Transmission Date: 20221027
  Serious: Yes (Other)
  Sender: FDA-Public Use
  Company Number: 2021A803586

PATIENT
  Age: 20847 Day
  Sex: Female

DRUGS (41)
  1. PRILOSEC [Suspect]
     Active Substance: OMEPRAZOLE MAGNESIUM
     Indication: Dyspepsia
     Route: 048
     Dates: start: 2012, end: 2016
  2. PRILOSEC [Suspect]
     Active Substance: OMEPRAZOLE MAGNESIUM
     Indication: Dyspepsia
     Route: 048
     Dates: start: 2012
  3. PRILOSEC [Suspect]
     Active Substance: OMEPRAZOLE MAGNESIUM
     Indication: Dyspepsia
     Dosage: GENERIC
     Route: 065
     Dates: start: 2012, end: 2016
  4. PRILOSEC [Suspect]
     Active Substance: OMEPRAZOLE MAGNESIUM
     Indication: Dyspepsia
     Route: 048
     Dates: start: 20150331
  5. PRILOSEC OTC [Suspect]
     Active Substance: OMEPRAZOLE MAGNESIUM
     Indication: Dyspepsia
     Route: 048
     Dates: start: 2012, end: 2016
  6. HYDROXYZINE [Concomitant]
     Active Substance: HYDROXYZINE HYDROCHLORIDE
  7. MEPERIDINE [Concomitant]
     Active Substance: MEPERIDINE
  8. PROMETHAZINE [Concomitant]
     Active Substance: PROMETHAZINE HYDROCHLORIDE
  9. ALLOPURINOL [Concomitant]
     Active Substance: ALLOPURINOL
  10. METFORMIN [Concomitant]
     Active Substance: METFORMIN HYDROCHLORIDE
  11. CLARITIN [Concomitant]
     Active Substance: LORATADINE
  12. ATORVASTATIN [Concomitant]
     Active Substance: ATORVASTATIN
     Indication: Hyperlipidaemia
     Dates: start: 2015, end: 2017
  13. NORTRIPTYLINE [Concomitant]
     Active Substance: NORTRIPTYLINE
  14. PREDNISOLONE [Concomitant]
     Active Substance: PREDNISOLONE
  15. ZANTAC [Concomitant]
     Active Substance: RANITIDINE HYDROCHLORIDE
  16. FLONASE [Concomitant]
     Active Substance: FLUTICASONE PROPIONATE
  17. TYLENOL [Concomitant]
     Active Substance: ACETAMINOPHEN
  18. TRIAMCINOLONE [Concomitant]
     Active Substance: TRIAMCINOLONE
  19. AZITHROMYCIN [Concomitant]
     Active Substance: AZITHROMYCIN
     Indication: Infection
     Dates: start: 2009
  20. BENZONATATE [Concomitant]
     Active Substance: BENZONATATE
     Dates: start: 20151203
  21. ASPIRIN [Concomitant]
     Active Substance: ASPIRIN
     Dates: start: 20151203
  22. VIGAMOX [Concomitant]
     Active Substance: MOXIFLOXACIN HYDROCHLORIDE
     Indication: Infection
     Dates: start: 2010
  23. FLUCONAZOLE [Concomitant]
     Active Substance: FLUCONAZOLE
     Dates: start: 20151203
  24. TAMSULOSIN [Concomitant]
     Active Substance: TAMSULOSIN
     Dates: start: 20151203
  25. METRONIDAZOLE [Concomitant]
     Active Substance: METRONIDAZOLE
     Dates: start: 20151203
  26. FISH OIL [Concomitant]
     Active Substance: FISH OIL
     Dates: start: 20151203
  27. BACTRIM [Concomitant]
     Active Substance: SULFAMETHOXAZOLE\TRIMETHOPRIM
     Dates: start: 20151203
  28. NEOMYCIN/ACETIC ACID/DEXAMETHASONE [Concomitant]
     Dates: start: 20151203
  29. BENADRYL [Concomitant]
     Active Substance: DIPHENHYDRAMINE HYDROCHLORIDE
     Dates: start: 20151203
  30. ROXICET [Concomitant]
     Active Substance: ACETAMINOPHEN\OXYCODONE HYDROCHLORIDE
  31. PREMARIN [Concomitant]
     Active Substance: ESTROGENS, CONJUGATED
     Dates: start: 20010324
  32. ZYRTEC [Concomitant]
     Active Substance: CETIRIZINE HYDROCHLORIDE
     Dates: start: 20010831
  33. ONDANSETRON [Concomitant]
     Active Substance: ONDANSETRON
     Dates: start: 20010831
  34. DOXYCYCLINE [Concomitant]
     Active Substance: DOXYCYCLINE
     Indication: Infection
     Dates: start: 2006, end: 2009
  35. TRAMADOL [Concomitant]
     Active Substance: TRAMADOL
     Indication: Pain
     Dates: start: 2011, end: 2014
  36. NEOMYCIN [Concomitant]
     Active Substance: NEOMYCIN
     Indication: Infection
     Dates: start: 2013
  37. CIPROFLOXACIN [Concomitant]
     Active Substance: CIPROFLOXACIN
     Indication: Infection
     Dates: start: 2014, end: 2015
  38. LEVOFLOXACIN [Concomitant]
     Active Substance: LEVOFLOXACIN
     Indication: Infection
     Dates: start: 2015
  39. ALKA-SELTZER [Concomitant]
     Active Substance: ANHYDROUS CITRIC ACID\ASPIRIN\SODIUM BICARBONATE
     Dates: start: 2009, end: 2011
  40. ROLAIDS [Concomitant]
     Active Substance: CALCIUM CARBONATE\MAGNESIUM HYDROXIDE
     Dates: start: 2009, end: 2011
  41. PEPTO-BISMOL [Concomitant]
     Active Substance: BISMUTH SUBSALICYLATE
     Dates: start: 2009, end: 2011

REACTIONS (3)
  - Chronic kidney disease [Not Recovered/Not Resolved]
  - Acute kidney injury [Unknown]
  - Dyspepsia [Not Recovered/Not Resolved]

NARRATIVE: CASE EVENT DATE: 20140811
